FAERS Safety Report 8195853-8 (Version None)
Quarter: 2012Q1

REPORT INFORMATION
  Report Type: 
  Country: None (occurrence: None)
  Receive Date: 20120308
  Receipt Date: 20111216
  Transmission Date: 20120608
  Serious: Yes (Other)
  Sender: FDA-Public Use
  Company Number: PHHY2011KR115767

PATIENT
  Sex: Male
  Weight: 62 kg

DRUGS (2)
  1. EXJADE [Suspect]
     Indication: IRON OVERLOAD
     Route: 048
  2. STEROIDS NOS [Concomitant]

REACTIONS (2)
  - BONE DISORDER [None]
  - GAIT DISTURBANCE [None]
